FAERS Safety Report 9825243 (Version 1)
Quarter: 2014Q1

REPORT INFORMATION
  Report Type: Spontaneous
  Country: US (occurrence: US)
  Receive Date: 20140117
  Receipt Date: 20140117
  Transmission Date: 20141002
  Serious: Yes (Other)
  Sender: FDA-Public Use
  Company Number: US-TEVA-456534USA

PATIENT
  Sex: Female

DRUGS (1)
  1. COPAXONE [Suspect]

REACTIONS (4)
  - Exposure during pregnancy [Unknown]
  - Autism [Unknown]
  - Attention deficit/hyperactivity disorder [Unknown]
  - Cerebral palsy [Unknown]
